FAERS Safety Report 8468864-2 (Version None)
Quarter: 2012Q2

REPORT INFORMATION
  Report Type: 
  Country: None (occurrence: None)
  Receive Date: 20120626
  Receipt Date: 20100806
  Transmission Date: 20120825
  Serious: Yes (Other)
  Sender: FDA-Public Use
  Company Number: US-ROCHE-719911

PATIENT
  Age: 67 Year
  Sex: Female
  Weight: 49.9 kg

DRUGS (3)
  1. CHONDROITIN [Concomitant]
     Dosage: 5 YEARS
  2. BONIVA [Suspect]
     Indication: OSTEOPOROSIS
     Route: 065
  3. GLUCOSAMINE [Concomitant]
     Dosage: 5 YEARS

REACTIONS (3)
  - ANKLE FRACTURE [None]
  - FALL [None]
  - TOOTH FRACTURE [None]
